FAERS Safety Report 5119545-4 (Version None)
Quarter: 2006Q4

REPORT INFORMATION
  Report Type: 
  Country: None (occurrence: None)
  Receive Date: 20061003
  Receipt Date: 20060118
  Transmission Date: 20070319
  Serious: Yes (Other)
  Sender: FDA-Public Use
  Company Number: US-ROCHE-432857

PATIENT
  Age: 15 Year
  Sex: Female
  Weight: 88.5 kg

DRUGS (3)
  1. ACCUTANE [Suspect]
     Indication: ACNE
     Route: 048
     Dates: start: 19920422, end: 19920515
  2. ACCUTANE [Suspect]
     Route: 048
     Dates: start: 19920617, end: 19920901
  3. ACCUTANE [Suspect]
     Route: 048
     Dates: start: 19960422, end: 19960831

REACTIONS (20)
  - ABSCESS INTESTINAL [None]
  - APHONIA [None]
  - BLOOD TRIGLYCERIDES INCREASED [None]
  - COLITIS ULCERATIVE [None]
  - CONJUNCTIVITIS [None]
  - DISEASE RECURRENCE [None]
  - DRUG EFFECT DECREASED [None]
  - DYSTHYMIC DISORDER [None]
  - HIGH DENSITY LIPOPROTEIN DECREASED [None]
  - INFLAMMATORY BOWEL DISEASE [None]
  - INJURY [None]
  - MAJOR DEPRESSION [None]
  - PREMENSTRUAL SYNDROME [None]
  - PROCTITIS ULCERATIVE [None]
  - PULMONARY EMBOLISM [None]
  - ROAD TRAFFIC ACCIDENT [None]
  - SLEEP APNOEA SYNDROME [None]
  - TREMOR [None]
  - UPPER RESPIRATORY TRACT INFECTION [None]
  - XEROSIS [None]
